FAERS Safety Report 8477528-0 (Version None)
Quarter: 2012Q2

REPORT INFORMATION
  Report Type: 
  Country: None (occurrence: None)
  Receive Date: 20120629
  Receipt Date: 20120619
  Transmission Date: 20120825
  Serious: Yes (Hospitalization)
  Sender: FDA-Public Use
  Company Number: CA-MPIJNJ-2012-04389

PATIENT

DRUGS (13)
  1. VITAMIN D [Concomitant]
  2. TYLENOL (CAPLET) [Concomitant]
     Indication: ARTHRITIS
  3. CYCLOPHOSPHAMIDE [Concomitant]
     Route: 048
  4. ASPIRIN [Concomitant]
  5. GLUCOSAMINE [Concomitant]
  6. OMEGA 3                            /01334101/ [Concomitant]
  7. CALCIUM [Concomitant]
  8. CENTRUM                            /00554501/ [Concomitant]
  9. SYNTHROID [Concomitant]
  10. VELCADE [Suspect]
     Indication: PRODUCT USED FOR UNKNOWN INDICATION
     Dosage: 1.5 MG/M2, UNK
     Route: 042
  11. LIPITOR [Concomitant]
  12. DEXAMETHASONE [Concomitant]
     Route: 048
  13. FISH OIL [Concomitant]

REACTIONS (4)
  - OXYGEN SATURATION DECREASED [None]
  - DYSPNOEA [None]
  - C-REACTIVE PROTEIN INCREASED [None]
  - LUNG INFILTRATION [None]
